FAERS Safety Report 20724377 (Version 1)
Quarter: 2022Q2

REPORT INFORMATION
  Report Type: Spontaneous
  Country: US (occurrence: US)
  Receive Date: 20220419
  Receipt Date: 20220419
  Transmission Date: 20220721
  Serious: Yes (Other)
  Sender: FDA-Public Use
  Company Number: US-PFIZER INC-202200547070

PATIENT
  Age: 59 Year
  Sex: Male
  Weight: 95.25 kg

DRUGS (1)
  1. TESTOSTERONE [Suspect]
     Active Substance: TESTOSTERONE
     Dosage: 200MG PER ML, 2 ML EVERY TWO 2WEEKS, CYCLIC
     Route: 030
     Dates: start: 20200831

REACTIONS (3)
  - Product physical consistency issue [Unknown]
  - Poor quality product administered [Unknown]
  - Injection site cellulitis [Unknown]

NARRATIVE: CASE EVENT DATE: 20220314
